FAERS Safety Report 5240118-7 (Version None)
Quarter: 2007Q1

REPORT INFORMATION
  Report Type: 
  Country: None (occurrence: None)
  Receive Date: 20070216
  Receipt Date: 20070207
  Transmission Date: 20070707
  Serious: Yes (Disabling, Other)
  Sender: FDA-Public Use
  Company Number: US-PFIZER INC-2007010775

PATIENT
  Sex: Female
  Weight: 131.5 kg

DRUGS (3)
  1. LIPITOR [Suspect]
     Indication: BLOOD CHOLESTEROL INCREASED
  2. TYLENOL (CAPLET) [Concomitant]
  3. PROCRIT [Concomitant]

REACTIONS (3)
  - ABASIA [None]
  - ARTHRALGIA [None]
  - PAIN [None]
